FAERS Safety Report 4376939-2 (Version None)
Quarter: 2004Q2

REPORT INFORMATION
  Report Type: 
  Country: None (occurrence: None)
  Receive Date: 20040608
  Receipt Date: 20040526
  Transmission Date: 20050107
  Serious: Yes (Death, Hospitalization, Other)
  Sender: FDA-Public Use
  Company Number: 2004012490

PATIENT
  Sex: Female

DRUGS (6)
  1. ZELDOX [Suspect]
     Indication: SCHIZOPHRENIA
     Dosage: 80 MG (40 MG, 2 IN 1 D) , ORAL
     Route: 048
     Dates: start: 20040101, end: 20040201
  2. CLOZAPINE [Concomitant]
  3. RISPERIDONE [Concomitant]
  4. HALOPERIDOL [Concomitant]
  5. ZUCLOPENTHIXOL [Concomitant]
  6. DIAZEPAM [Concomitant]

REACTIONS (3)
  - PSYCHOTIC DISORDER [None]
  - PULMONARY EMBOLISM [None]
  - TREATMENT NONCOMPLIANCE [None]
